FAERS Safety Report 8885713 (Version 1)
Quarter: 2012Q4

REPORT INFORMATION
  Report Type: 
  Country: AU (occurrence: AU)
  Receive Date: 20121102
  Receipt Date: 20121102
  Transmission Date: 20130627
  Serious: Yes (Other)
  Sender: FDA-Public Use
  Company Number: AU-PFIZER INC-2012272030

PATIENT
  Age: 55 Year
  Sex: Female

DRUGS (1)
  1. PRISTIQ [Suspect]
     Indication: HOT FLUSHES MENOPAUSAL
     Dosage: UNK
     Route: 048

REACTIONS (2)
  - Paranoia [Recovered/Resolved]
  - Off label use [Unknown]
